FAERS Safety Report 7395193-0 (Version None)
Quarter: 2011Q2

REPORT INFORMATION
  Report Type: 
  Country: None (occurrence: None)
  Receive Date: 20110405
  Receipt Date: 20110331
  Transmission Date: 20111010
  Serious: Yes (Death, Other)
  Sender: FDA-Public Use
  Company Number: CN-GENZYME-FLUD-1000366

PATIENT
  Age: 53 Year
  Sex: Male

DRUGS (15)
  1. ARSENIC [Concomitant]
     Indication: MANTLE CELL LYMPHOMA
     Dosage: UNK
     Route: 065
  2. BORTEZOMIB [Concomitant]
     Indication: MANTLE CELL LYMPHOMA
     Dosage: UNK
     Route: 065
  3. CHLORAMBUCIL [Concomitant]
     Indication: MANTLE CELL LYMPHOMA
     Dosage: UNK
     Route: 065
  4. DOXORUBICIN [Concomitant]
     Indication: MANTLE CELL LYMPHOMA
     Dosage: UNK
     Route: 065
  5. CYCLOPHOSPHAMIDE [Concomitant]
     Indication: MANTLE CELL LYMPHOMA
     Dosage: UNK
     Route: 065
  6. PREDNISONE [Concomitant]
     Indication: MANTLE CELL LYMPHOMA
     Dosage: UNK
     Route: 065
  7. ETOPOSIDE [Concomitant]
     Indication: MANTLE CELL LYMPHOMA
     Dosage: UNK
     Route: 065
  8. IFOSFAMIDE [Concomitant]
     Indication: MANTLE CELL LYMPHOMA
     Dosage: UNK
     Route: 065
  9. CARBOPLATIN [Concomitant]
     Indication: MANTLE CELL LYMPHOMA
     Dosage: UNK
     Route: 065
  10. TEMSIROLIMUS [Concomitant]
     Dosage: 75 MG, 1X/W
     Route: 065
     Dates: start: 20080101
  11. TEMSIROLIMUS [Concomitant]
     Indication: MANTLE CELL LYMPHOMA RECURRENT
     Dosage: 175 MG, 1X/W
     Route: 065
     Dates: start: 20080301
  12. FLUDARA [Suspect]
     Indication: MANTLE CELL LYMPHOMA
     Dosage: 25 MG/M2, QDX5 EVERY 8 WEEKS
     Route: 042
     Dates: start: 20060101, end: 20070301
  13. VINCRISTINE [Concomitant]
     Indication: MANTLE CELL LYMPHOMA
     Dosage: UNK
     Route: 065
  14. RITUXIMAB [Concomitant]
     Indication: MANTLE CELL LYMPHOMA
     Dosage: UNK
     Route: 065
  15. THALIDOMIDE [Concomitant]
     Indication: MANTLE CELL LYMPHOMA
     Dosage: UNK
     Route: 065

REACTIONS (3)
  - NEOPLASM MALIGNANT [None]
  - BONE MARROW DISORDER [None]
  - LUNG INFECTION [None]
